FAERS Safety Report 6195382-7 (Version None)
Quarter: 2009Q2

REPORT INFORMATION
  Report Type: 
  Country: None (occurrence: None)
  Receive Date: 20090515
  Receipt Date: 20090508
  Transmission Date: 20091009
  Serious: No
  Sender: FDA-Public Use
  Company Number: 264305

PATIENT
  Age: 41 Year
  Sex: Female
  Weight: 86 kg

DRUGS (2)
  1. VANCOMYCIN HCL [Suspect]
     Indication: DRUG USE FOR UNKNOWN INDICATION
     Dosage: 1 G ( ONCE ) INTRAVENOUS
     Route: 042
     Dates: start: 20090504, end: 20090504
  2. LORTAB [Concomitant]

REACTIONS (4)
  - DRUG HYPERSENSITIVITY [None]
  - LOCALISED OEDEMA [None]
  - PRURITUS [None]
  - RASH ERYTHEMATOUS [None]
